FAERS Safety Report 5874877-7 (Version None)
Quarter: 2008Q3

REPORT INFORMATION
  Report Type: 
  Country: None (occurrence: None)
  Receive Date: 20080909
  Receipt Date: 20080829
  Transmission Date: 20090109
  Serious: Yes (Death)
  Sender: FDA-Public Use
  Company Number: MX-NOVOPROD-278483

PATIENT
  Sex: Male

DRUGS (5)
  1. LEVEMIR [Suspect]
     Indication: DIABETES MELLITUS
     Route: 058
     Dates: start: 20071201, end: 20080819
  2. ATACAND HCT [Concomitant]
  3. NOVORAPID [Concomitant]
  4. CRESTOR [Concomitant]
     Dosage: 10 MG, QD
  5. ASPIRIN [Concomitant]

REACTIONS (1)
  - ACUTE MYOCARDIAL INFARCTION [None]
